FAERS Safety Report 5499072-5 (Version None)
Quarter: 2007Q4

REPORT INFORMATION
  Report Type: 
  Country: None (occurrence: None)
  Receive Date: 20071026
  Receipt Date: 20070525
  Transmission Date: 20080405
  Serious: No
  Sender: FDA-Public Use
  Company Number: A0653014A

PATIENT
  Age: 39 Year
  Sex: Male

DRUGS (4)
  1. ADVAIR DISKUS 100/50 [Suspect]
     Indication: ASTHMA
     Dosage: 1PUFF TWICE PER DAY
     Route: 055
     Dates: start: 20070502, end: 20070519
  2. PROTONIX [Concomitant]
  3. CLONAZEPAM [Concomitant]
  4. ALLERGY SHOTS [Concomitant]

REACTIONS (4)
  - ASTHENIA [None]
  - DRY EYE [None]
  - DYSPNOEA [None]
  - EYE PAIN [None]
